FAERS Safety Report 25060945 (Version 2)
Quarter: 2025Q1

REPORT INFORMATION
  Report Type: Spontaneous
  Country: US (occurrence: US)
  Receive Date: 20250310
  Receipt Date: 20250317
  Transmission Date: 20250409
  Serious: Yes (Hospitalization)
  Sender: ELI LILLY AND COMPANY
  Company Number: US-ELI_LILLY_AND_COMPANY-US202503003726

PATIENT
  Age: 78 Year
  Sex: Male

DRUGS (10)
  1. TRULICITY [Suspect]
     Active Substance: DULAGLUTIDE
     Indication: Diabetes mellitus
     Route: 065
  2. TRULICITY [Suspect]
     Active Substance: DULAGLUTIDE
     Route: 065
  3. TRULICITY [Suspect]
     Active Substance: DULAGLUTIDE
     Route: 065
  4. TRULICITY [Suspect]
     Active Substance: DULAGLUTIDE
     Route: 065
  5. TRULICITY [Suspect]
     Active Substance: DULAGLUTIDE
     Route: 065
  6. TRULICITY [Suspect]
     Active Substance: DULAGLUTIDE
     Route: 065
  7. TRULICITY [Suspect]
     Active Substance: DULAGLUTIDE
     Route: 065
  8. TRULICITY [Suspect]
     Active Substance: DULAGLUTIDE
     Route: 065
  9. TRULICITY [Suspect]
     Active Substance: DULAGLUTIDE
     Route: 065
  10. TRULICITY [Suspect]
     Active Substance: DULAGLUTIDE
     Route: 065

REACTIONS (4)
  - Dyspnoea [Not Recovered/Not Resolved]
  - Nausea [Not Recovered/Not Resolved]
  - Product dose omission issue [Unknown]
  - Dizziness [Unknown]

NARRATIVE: CASE EVENT DATE: 20250301
